FAERS Safety Report 22151324 (Version 1)
Quarter: 2023Q1

REPORT INFORMATION
  Report Type: Spontaneous
  Country: CZ (occurrence: CZ)
  Receive Date: 20230329
  Receipt Date: 20230329
  Transmission Date: 20230418
  Serious: Yes (Other)
  Sender: FDA-Public Use
  Company Number: CZ-ABBVIE-4699095

PATIENT
  Age: 65 Year
  Sex: Male

DRUGS (6)
  1. AZACITIDINE [Suspect]
     Active Substance: AZACITIDINE
     Indication: Acute myeloid leukaemia
     Dosage: FIRST CYCLES
     Dates: start: 20220608
  2. AZACITIDINE [Suspect]
     Active Substance: AZACITIDINE
     Dosage: SECOND CYCLE
     Dates: start: 20220721, end: 20220805
  3. AZACITIDINE [Suspect]
     Active Substance: AZACITIDINE
     Dates: start: 20220819
  4. VENETOCLAX [Suspect]
     Active Substance: VENETOCLAX
     Indication: Acute myeloid leukaemia
     Dosage: FIRST CYCLE
     Route: 048
     Dates: start: 20220608
  5. VENETOCLAX [Suspect]
     Active Substance: VENETOCLAX
     Dosage: SECOND CYCLE
     Route: 048
     Dates: start: 20220721, end: 20220805
  6. VENETOCLAX [Suspect]
     Active Substance: VENETOCLAX
     Dosage: THIRD CYCLE
     Route: 048
     Dates: start: 20220819

REACTIONS (3)
  - Neutropenia [Unknown]
  - Acute graft versus host disease [Unknown]
  - Colitis [Unknown]

NARRATIVE: CASE EVENT DATE: 20230101
